FAERS Safety Report 7016898-7 (Version None)
Quarter: 2010Q3

REPORT INFORMATION
  Report Type: 
  Country: None (occurrence: None)
  Receive Date: 20100927
  Receipt Date: 20100913
  Transmission Date: 20110219
  Serious: Yes (Death)
  Sender: FDA-Public Use
  Company Number: CO-GENENTECH-306725

PATIENT
  Sex: Male

DRUGS (1)
  1. MABTHERA [Suspect]
     Indication: IDIOPATHIC THROMBOCYTOPENIC PURPURA
     Dosage: 500 MG, 1/MONTH
     Route: 042
     Dates: start: 20091126, end: 20100608

REACTIONS (2)
  - CARDIO-RESPIRATORY ARREST [None]
  - DISEASE PROGRESSION [None]
